FAERS Safety Report 18594027 (Version 1)
Quarter: 2020Q4

REPORT INFORMATION
  Report Type: Report from Study
  Country: None (occurrence: US)
  Receive Date: 20201209
  Receipt Date: 20201209
  Transmission Date: 20210114
  Serious: Yes (Hospitalization, Other)
  Sender: FDA-Public Use
  Company Number: US-ABBVIE-20K-163-3636322-00

PATIENT
  Age: 52 Year
  Sex: Male
  Weight: 68.1 kg

DRUGS (1)
  1. HUMIRA [Suspect]
     Active Substance: ADALIMUMAB
     Indication: CROHN^S DISEASE
     Route: 058
     Dates: start: 2017, end: 20200828

REACTIONS (13)
  - Toothache [Recovered/Resolved]
  - Ileostomy [Unknown]
  - Tooth disorder [Not Recovered/Not Resolved]
  - Weight decreased [Recovered/Resolved]
  - Weight increased [Unknown]
  - Localised infection [Unknown]
  - Abdominal pain [Recovered/Resolved]
  - Vomiting [Recovered/Resolved]
  - Drug specific antibody present [Not Recovered/Not Resolved]
  - Oral infection [Recovered/Resolved]
  - Drug ineffective [Unknown]
  - Stoma creation [Unknown]
  - Colon operation [Recovering/Resolving]

NARRATIVE: CASE EVENT DATE: 202009
